FAERS Safety Report 8163205-2 (Version None)
Quarter: 2012Q1

REPORT INFORMATION
  Report Type: 
  Country: None (occurrence: None)
  Receive Date: 20120224
  Receipt Date: 20110922
  Transmission Date: 20120608
  Serious: No
  Sender: FDA-Public Use
  Company Number: US-PFIZER INC-K201101121

PATIENT
  Sex: Female
  Weight: 72.562 kg

DRUGS (5)
  1. NEURONTIN [Concomitant]
     Indication: CONVULSION
     Dosage: UNK
  2. FLECTOR [Suspect]
     Dosage: UNK PATCH, BID
     Dates: start: 20090101
  3. LORTAB [Concomitant]
     Dosage: UNK
  4. FLECTOR [Suspect]
     Indication: BACK INJURY
     Dosage: UNK PATCH, QD
     Route: 061
  5. FLEXERIL [Concomitant]
     Indication: PAIN
     Dosage: 10 MG, AS NEEDED

REACTIONS (1)
  - DRUG INEFFECTIVE [None]
